FAERS Safety Report 13650843 (Version 1)
Quarter: 2017Q2

REPORT INFORMATION
  Report Type: Report from Study
  Country: DE (occurrence: DE)
  Receive Date: 20170614
  Receipt Date: 20170614
  Transmission Date: 20170830
  Serious: Yes (Other)
  Sender: FDA-Public Use
  Company Number: DE-BIOGEN-2017BI00392781

PATIENT
  Age: 36 Year
  Sex: Female

DRUGS (2)
  1. ZIPROFLOXACIN [Concomitant]
     Indication: TOOTHACHE
     Dosage: FOR FIVE DAYS
     Route: 065
     Dates: start: 20170411, end: 20170416
  2. PLEGRIDY [Suspect]
     Active Substance: PEGINTERFERON BETA-1A
     Indication: MULTIPLE SCLEROSIS
     Route: 058
     Dates: start: 20161111

REACTIONS (2)
  - Abortion spontaneous [Recovered/Resolved]
  - Maternal exposure during pregnancy [Unknown]

NARRATIVE: CASE EVENT DATE: 20170508
